FAERS Safety Report 16812478 (Version 5)
Quarter: 2022Q3

REPORT INFORMATION
  Report Type: Report from Study
  Country: JP (occurrence: JP)
  Receive Date: 20190916
  Receipt Date: 20220809
  Transmission Date: 20221027
  Serious: Yes (Life-Threatening, Hospitalization)
  Sender: FDA-Public Use
  Company Number: JP-JT-EVA201903140GILEAD-001

PATIENT
  Age: 71 Year
  Sex: Male

DRUGS (12)
  1. EMTRICITABINE\TENOFOVIR [Suspect]
     Active Substance: EMTRICITABINE\TENOFOVIR
     Indication: HIV infection
     Dosage: 1 DOSAGE FORM, QD
     Route: 048
     Dates: start: 20170802, end: 20200121
  2. ISENTRESS [Suspect]
     Active Substance: RALTEGRAVIR POTASSIUM
     Indication: HIV infection
     Dosage: 1 DOSAGE FORM, QD
     Route: 048
     Dates: start: 20180801, end: 20180904
  3. ISENTRESS [Suspect]
     Active Substance: RALTEGRAVIR POTASSIUM
     Dosage: 2 DOSAGE FORM, QD
     Route: 048
     Dates: start: 20180905, end: 20200731
  4. DARUNAVIR [Suspect]
     Active Substance: DARUNAVIR
     Indication: HIV infection
     Dosage: 800 MG, QD
     Route: 048
     Dates: start: 20170802, end: 20200121
  5. NORVIR [Suspect]
     Active Substance: RITONAVIR
     Indication: HIV infection
     Dosage: 100 MG, QD
     Route: 048
     Dates: start: 20170802, end: 20200121
  6. ISENTRESS [Concomitant]
     Active Substance: RALTEGRAVIR POTASSIUM
     Indication: HIV infection
     Dosage: 800 MG
     Dates: start: 20170802, end: 20180731
  7. CANDESARTAN [Concomitant]
     Active Substance: CANDESARTAN
     Indication: Disease complication
     Dosage: UNK
     Route: 048
     Dates: start: 20170802, end: 20200520
  8. CRESTOR [Concomitant]
     Active Substance: ROSUVASTATIN CALCIUM
     Indication: Disease complication
     Dosage: UNK
     Route: 048
     Dates: start: 20170802
  9. BROTIZOLAM [Concomitant]
     Active Substance: BROTIZOLAM
     Indication: Disease complication
     Dosage: UNK
     Route: 048
     Dates: start: 20170802
  10. FEBUXOSTAT [Concomitant]
     Active Substance: FEBUXOSTAT
     Indication: Disease complication
     Dosage: UNK
     Route: 048
     Dates: start: 20170802
  11. NOVORAPID [Concomitant]
     Active Substance: INSULIN ASPART
     Indication: Disease complication
     Dosage: UNK
     Route: 058
     Dates: start: 20170802
  12. IPRAGLIFLOZIN L-PROLINE [Concomitant]
     Active Substance: IPRAGLIFLOZIN L-PROLINE
     Indication: Disease complication
     Dosage: UNK
     Route: 048
     Dates: start: 20170802, end: 20190905

REACTIONS (2)
  - Angina pectoris [Not Recovered/Not Resolved]
  - Underdose [Recovered/Resolved]

NARRATIVE: CASE EVENT DATE: 20180801
